FAERS Safety Report 10508851 (Version 2)
Quarter: 2014Q4

REPORT INFORMATION
  Report Type: Spontaneous
  Country: GB (occurrence: GB)
  Receive Date: 20141009
  Receipt Date: 20141103
  Transmission Date: 20150528
  Serious: Yes (Other)
  Sender: FDA-Public Use
  Company Number: PHHY2014GB128654

PATIENT
  Age: 55 Year
  Sex: Female

DRUGS (5)
  1. QUETIAPINE [Suspect]
     Active Substance: QUETIAPINE
     Dosage: 200 MG, QD
     Route: 048
  2. QUETIAPINE [Suspect]
     Active Substance: QUETIAPINE
     Dosage: 400 MG, QD
     Route: 048
  3. QUETIAPINE [Suspect]
     Active Substance: QUETIAPINE
     Indication: BIPOLAR DISORDER
     Dosage: 300 MG, QD
     Route: 048
  4. VALPROATE SODIUM. [Concomitant]
     Active Substance: VALPROATE SODIUM
  5. QUETIAPINE [Suspect]
     Active Substance: QUETIAPINE
     Dosage: 600 MG, QD
     Route: 048

REACTIONS (10)
  - Depression [Recovered/Resolved]
  - Somnolence [Recovered/Resolved]
  - Speech disorder [Recovered/Resolved]
  - Drug withdrawal syndrome [Recovered/Resolved]
  - Mania [Recovered/Resolved]
  - Confusional state [Not Recovered/Not Resolved]
  - Vision blurred [Recovered/Resolved]
  - Feeling drunk [Recovered/Resolved]
  - Sleep phase rhythm disturbance [Recovered/Resolved]
  - Gait disturbance [Recovered/Resolved]

NARRATIVE: CASE EVENT DATE: 20131008
